FAERS Safety Report 4850932-5 (Version None)
Quarter: 2005Q4

REPORT INFORMATION
  Report Type: 
  Country: None (occurrence: None)
  Receive Date: 20051208
  Receipt Date: 20051208
  Transmission Date: 20060501
  Serious: Yes (Hospitalization, Other)
  Sender: FDA-Public Use
  Company Number: None

PATIENT
  Age: 66 Year
  Sex: Male

DRUGS (2)
  1. THEOPHYLLINE [Suspect]
     Dosage: 200 MG PO QID
     Route: 048
  2. HOME ^NEBS^ NOT DEFINED [Suspect]

REACTIONS (7)
  - ANXIETY [None]
  - DOCUMENTED HYPERSENSITIVITY TO ADMINISTERED DRUG [None]
  - DRUG INTERACTION [None]
  - DYSPNOEA [None]
  - NAUSEA [None]
  - RESPIRATORY RATE INCREASED [None]
  - TACHYCARDIA [None]
